FAERS Safety Report 22043407 (Version 5)
Quarter: 2023Q2

REPORT INFORMATION
  Report Type: Report from Study
  Country: US (occurrence: None)
  Receive Date: 20230228
  Receipt Date: 20230519
  Transmission Date: 20230721
  Serious: Yes (Hospitalization)
  Sender: FDA-Public Use
  Company Number: US-ROCHE-3290646

PATIENT
  Age: 71 Year
  Sex: Male

DRUGS (14)
  1. FARICIMAB [Suspect]
     Active Substance: FARICIMAB
     Indication: Neovascular age-related macular degeneration
     Dosage: ON 06/DEC/2022, STARTED MOST RECENT DOSE OF FARICIMAB (6MG) PRIOR TO AE/SAE AND ENDED ON SAME DAY.
     Route: 050
     Dates: start: 20211012
  2. FARICIMAB [Suspect]
     Active Substance: FARICIMAB
     Dosage: ON 08/NOV/2022, STARTED MOST RECENT DOSE OF FARICIMAB-ANTIVEGF (6 MG) PRIOR TO AE/SAE AND ENDED ON S
     Route: 050
     Dates: start: 20220711
  3. RANIBIZUMAB [Suspect]
     Active Substance: RANIBIZUMAB
     Indication: Neovascular age-related macular degeneration
     Route: 065
     Dates: start: 20211112
  4. FARICIMAB [Suspect]
     Active Substance: FARICIMAB
     Indication: Neovascular age-related macular degeneration
     Dosage: LAST DOSE OF FARICIMAB-ANTIVEGF  ADMIN PRIOR AE/SAE WAS 6 MG?ON 08-NOV-2022 9:35 AM, MOST RECENT DOS
     Route: 050
     Dates: start: 20220711
  5. CELLCEPT [Concomitant]
     Active Substance: MYCOPHENOLATE MOFETIL
     Indication: Rheumatoid arthritis
     Route: 048
     Dates: start: 201803
  6. CELLCEPT [Concomitant]
     Active Substance: MYCOPHENOLATE MOFETIL
     Indication: Immunosuppression
  7. FLUCONAZOLE [Concomitant]
     Active Substance: FLUCONAZOLE
     Route: 048
     Dates: start: 201803
  8. PROTONIX [Concomitant]
     Active Substance: PANTOPRAZOLE SODIUM
     Indication: Gastrooesophageal reflux disease
     Route: 048
     Dates: start: 201803
  9. AMLODIPINE [Concomitant]
     Active Substance: AMLODIPINE BESYLATE
     Indication: Hypertension
     Route: 048
     Dates: start: 2014, end: 20230204
  10. MAGNESIUM [Concomitant]
     Active Substance: MAGNESIUM
     Route: 048
     Dates: start: 2018
  11. LIPITOR [Concomitant]
     Active Substance: ATORVASTATIN CALCIUM
     Indication: Hyperlipidaemia
     Route: 048
     Dates: start: 2014
  12. LISINOPRIL [Concomitant]
     Active Substance: LISINOPRIL
     Indication: Hypertension
     Route: 048
     Dates: start: 202206
  13. TACROLIMUS [Concomitant]
     Active Substance: TACROLIMUS
     Indication: Rheumatoid arthritis
     Route: 048
     Dates: start: 20221106
  14. ATORVASTATIN [Concomitant]
     Active Substance: ATORVASTATIN
     Indication: Hypertension
     Route: 048
     Dates: start: 20230204

REACTIONS (2)
  - Cerebrovascular accident [Not Recovered/Not Resolved]
  - Cardiac failure [Not Recovered/Not Resolved]

NARRATIVE: CASE EVENT DATE: 20230204
